FAERS Safety Report 4399163-6 (Version None)
Quarter: 2004Q3

REPORT INFORMATION
  Report Type: 
  Country: None (occurrence: None)
  Receive Date: 20040716
  Receipt Date: 20040706
  Transmission Date: 20050211
  Serious: Yes (Other)
  Sender: FDA-Public Use
  Company Number: PHBS2004CH09053

PATIENT
  Age: 70 Year
  Sex: Male

DRUGS (3)
  1. LESCOL [Suspect]
     Dosage: 80 MG/DAY
     Route: 048
  2. ATENOLOL [Concomitant]
  3. ASPIRIN [Concomitant]

REACTIONS (3)
  - EYELID OEDEMA [None]
  - INFLUENZA LIKE ILLNESS [None]
  - PHARYNGEAL OEDEMA [None]
